FAERS Safety Report 17839459 (Version 2)
Quarter: 2020Q2

REPORT INFORMATION
  Report Type: Spontaneous
  Country: TR (occurrence: TR)
  Receive Date: 20200529
  Receipt Date: 20200605
  Transmission Date: 20200714
  Serious: Yes (Other)
  Sender: FDA-Public Use
  Company Number: TR-PFIZER INC-2020210010

PATIENT
  Age: 28 Year
  Sex: Male

DRUGS (1)
  1. PREGABALIN. [Suspect]
     Active Substance: PREGABALIN
     Dosage: 2400 MG

REACTIONS (4)
  - Electrocardiogram PR prolongation [Unknown]
  - Atrioventricular block first degree [Unknown]
  - Toxicity to various agents [Unknown]
  - Overdose [Unknown]
